FAERS Safety Report 7636923-X (Version None)
Quarter: 2011Q3

REPORT INFORMATION
  Report Type: 
  Country: None (occurrence: None)
  Receive Date: 20110722
  Receipt Date: 20110722
  Transmission Date: 20111222
  Serious: Yes (Life-Threatening)
  Sender: FDA-Public Use
  Company Number: None

PATIENT
  Age: 36 Year
  Sex: Male
  Weight: 96.4 kg

DRUGS (1)
  1. VARENICLINE [Suspect]
     Indication: DRUG DEPENDENCE
     Dosage: 1 MG BID PO
     Route: 048
     Dates: start: 20100404, end: 20100427

REACTIONS (3)
  - SUICIDAL IDEATION [None]
  - ABNORMAL DREAMS [None]
  - DEPRESSION [None]
